FAERS Safety Report 9444947 (Version 1)
Quarter: 2013Q3

REPORT INFORMATION
  Report Type: Spontaneous
  Country: CA (occurrence: None)
  Receive Date: 20130802
  Receipt Date: 20130802
  Transmission Date: 20140515
  Serious: Yes (Death)
  Sender: FDA-Public Use
  Company Number: 2013P1013806

PATIENT
  Sex: 0

DRUGS (1)
  1. LITHIUM [Suspect]
     Indication: BIPOLAR DISORDER
     Dosage: UNKNOWN, UNKNOWN

REACTIONS (2)
  - Overdose [None]
  - Completed suicide [None]
